FAERS Safety Report 5776778-1 (Version None)
Quarter: 2008Q2

REPORT INFORMATION
  Report Type: 
  Country: None (occurrence: None)
  Receive Date: 20080618
  Receipt Date: 20080403
  Transmission Date: 20081010
  Serious: No
  Sender: FDA-Public Use
  Company Number: US-ASTRAZENECA-2008UW06775

PATIENT
  Sex: Female
  Weight: 64.9 kg

DRUGS (7)
  1. SYMBICORT [Suspect]
     Indication: NASOPHARYNGITIS
     Dosage: ONE PUFF BID
     Route: 055
     Dates: start: 20080329
  2. LISINOPRIL [Concomitant]
     Route: 048
  3. SYNTHROID [Concomitant]
     Route: 048
  4. POTASSIUM CHLORIDE [Concomitant]
  5. LASIX [Concomitant]
     Route: 048
  6. PROTONIX [Concomitant]
  7. COUMADIN [Concomitant]
     Dosage: 2 MG SIX DAYS A WEEK

REACTIONS (2)
  - ASTHENIA [None]
  - MUSCULAR WEAKNESS [None]
